FAERS Safety Report 8482865-X (Version None)
Quarter: 2012Q2

REPORT INFORMATION
  Report Type: 
  Country: None (occurrence: None)
  Receive Date: 20120625
  Receipt Date: 20120613
  Transmission Date: 20120825
  Serious: Yes (Life-Threatening)
  Sender: FDA-Public Use
  Company Number: 2012MA007573

PATIENT
  Age: 63 Year
  Sex: Male

DRUGS (7)
  1. RAMIPRIL [Suspect]
     Indication: HYPERTENSION
     Dosage: PO
     Route: 048
     Dates: end: 20100914
  2. METFORMIN HYDROCHLORIDE [Suspect]
     Indication: TYPE 2 DIABETES MELLITUS
     Dosage: PO
     Route: 048
     Dates: end: 20100914
  3. BEFIZAL (BEZAFIBRATE) [Suspect]
     Indication: DYSLIPIDAEMIA
     Dosage: PO
     Route: 048
     Dates: end: 20100914
  4. EZETIMIBE [Suspect]
     Indication: HYPERCHOLESTEROLAEMIA
     Dosage: PO
     Route: 048
     Dates: end: 20100914
  5. BYETTA [Suspect]
     Indication: TYPE 2 DIABETES MELLITUS
     Dosage: 10 UG;SC
     Route: 058
     Dates: start: 20091209, end: 20100914
  6. GLIMEPIRIDE [Suspect]
     Indication: TYPE 2 DIABETES MELLITUS
     Dosage: PO
     Route: 048
     Dates: end: 20100914
  7. NOVOMIX 30 (NO PREF. NAME) [Suspect]
     Indication: DIABETES MELLITUS
     Dosage: 100 U/ML;SC
     Route: 058
     Dates: end: 20100914

REACTIONS (6)
  - RENAL FAILURE [None]
  - HAEMODIALYSIS [None]
  - VENTRICULAR FIBRILLATION [None]
  - PANCREATITIS [None]
  - RENAL FAILURE CHRONIC [None]
  - SEPTIC SHOCK [None]
